FAERS Safety Report 4957597-2 (Version None)
Quarter: 2006Q1

REPORT INFORMATION
  Report Type: 
  Country: None (occurrence: None)
  Receive Date: 20060330
  Receipt Date: 20060126
  Transmission Date: 20060701
  Serious: Yes (Hospitalization)
  Sender: FDA-Public Use
  Company Number: FR-ABBOTT-06P-056-0323506-00

PATIENT
  Age: 29 Year
  Sex: Female

DRUGS (10)
  1. DEPAKENE [Suspect]
     Indication: SUICIDE ATTEMPT
     Dates: start: 20011003, end: 20011003
  2. DEPAKENE [Suspect]
  3. HYDROXYCHLOROQUINE PHOSPHATE [Suspect]
     Indication: SUICIDE ATTEMPT
     Dates: start: 20011003, end: 20011003
  4. HYDROXYCHLOROQUINE PHOSPHATE [Suspect]
  5. ALPRAZOLAM [Concomitant]
     Indication: DRUG USE FOR UNKNOWN INDICATION
     Dates: start: 20011003, end: 20011003
  6. ALPRAZOLAM [Concomitant]
  7. LORMETAZEPAM [Concomitant]
     Indication: DRUG USE FOR UNKNOWN INDICATION
     Dates: start: 20011003, end: 20011003
  8. LORMETAZEPAM [Concomitant]
  9. PAROXETINE HYDROCHLORIDE [Concomitant]
     Indication: DRUG USE FOR UNKNOWN INDICATION
     Dates: start: 20011003, end: 20011003
  10. PAROXETINE HYDROCHLORIDE [Concomitant]

REACTIONS (3)
  - INTENTIONAL DRUG MISUSE [None]
  - INTENTIONAL OVERDOSE [None]
  - SUICIDE ATTEMPT [None]
